FAERS Safety Report 6214871-X (Version None)
Quarter: 2009Q2

REPORT INFORMATION
  Report Type: 
  Country: None (occurrence: None)
  Receive Date: 20090604
  Receipt Date: 20090525
  Transmission Date: 20091009
  Serious: Yes (Hospitalization)
  Sender: FDA-Public Use
  Company Number: FR-PFIZER INC-2009180638

PATIENT
  Age: 65 Year

DRUGS (8)
  1. LYRICA [Suspect]
     Dosage: 50 MG, 3X/DAY
     Route: 048
  2. CLOZAPINE [Suspect]
     Dosage: 3.25 MG, 1X/DAY
     Route: 048
  3. SIFROL [Suspect]
     Dosage: 2.45 MG, 1X/DAY
  4. SINEMET [Suspect]
     Dosage: UNK
     Route: 048
  5. CITALOPRAM [Suspect]
     Route: 048
  6. SERESTA [Suspect]
     Route: 048
  7. COMTAN [Suspect]
     Dosage: 200 MG, UNK
     Route: 048
  8. ALPRAZOLAM [Suspect]
     Dosage: 50 MG, 3X/DAY
     Route: 048

REACTIONS (1)
  - PULMONARY EMBOLISM [None]
